FAERS Safety Report 8365517-6 (Version None)
Quarter: 2012Q2

REPORT INFORMATION
  Report Type: 
  Country: None (occurrence: None)
  Receive Date: 20120516
  Receipt Date: 20120508
  Transmission Date: 20120825
  Serious: Yes (Other)
  Sender: FDA-Public Use
  Company Number: JP-FRI-1000030482

PATIENT
  Age: 92 Year
  Sex: Male

DRUGS (5)
  1. MEMANTINE HCL [Suspect]
     Dosage: 15 MG
     Route: 048
     Dates: end: 20120503
  2. MEMANTINE HCL [Suspect]
     Dosage: 5 MG
     Route: 048
     Dates: start: 20120403
  3. MEMANTINE HCL [Suspect]
     Dosage: 10 MG
     Route: 048
  4. MEMANTINE HCL [Suspect]
     Dosage: 20 MG
     Route: 048
     Dates: start: 20120504, end: 20120508
  5. ARICEPT [Concomitant]

REACTIONS (4)
  - MIOSIS [None]
  - BLOOD PRESSURE INCREASED [None]
  - RESPIRATORY DEPRESSION [None]
  - ALTERED STATE OF CONSCIOUSNESS [None]
